FAERS Safety Report 9400886 (Version 2)
Quarter: 2013Q3

REPORT INFORMATION
  Report Type: Spontaneous
  Country: EC (occurrence: None)
  Receive Date: 20130711
  Receipt Date: 20130819
  Transmission Date: 20140515
  Serious: Yes (Hospitalization, Other)
  Sender: FDA-Public Use
  Company Number: ENTC2013-0244

PATIENT
  Age: 85 Year
  Sex: Female

DRUGS (2)
  1. STALEVO [Suspect]
     Indication: PARKINSON^S DISEASE
     Route: 048
     Dates: start: 2012
  2. SOMAZINA [Concomitant]
     Route: 048
     Dates: start: 2012

REACTIONS (4)
  - Diabetic coma [None]
  - Hypoglycaemia [None]
  - Urinary tract infection [None]
  - Cerebrovascular insufficiency [None]
